FAERS Safety Report 4461210-0 (Version None)
Quarter: 2004Q3

REPORT INFORMATION
  Report Type: 
  Country: None (occurrence: None)
  Receive Date: 20040923
  Receipt Date: 20040913
  Transmission Date: 20050211
  Serious: Yes (Death, Hospitalization, Other)
  Sender: FDA-Public Use
  Company Number: US-JNJFOC-20040903634

PATIENT
  Age: 41 Year
  Sex: Male

DRUGS (5)
  1. TYLENOL [Suspect]
     Indication: INFLUENZA LIKE ILLNESS
     Dosage: UNDISCLOSED NUMBER, EVERY 2 TO 4  HOURS, FOR 2 DAYS
  2. TYLENOL [Suspect]
     Indication: INTENTIONAL MISUSE
     Dosage: UNDISCLOSED NUMBER, EVERY 2 TO 4  HOURS, FOR 2 DAYS
  3. TYLENOL [Suspect]
     Indication: PYREXIA
     Dosage: UNDISCLOSED NUMBER, EVERY 2 TO 4  HOURS, FOR 2 DAYS
  4. IBUPROFEN [Suspect]
     Indication: INTENTIONAL MISUSE
     Dosage: UNDISCLOSED NUMBER EVERY 2-4 HOURS, FOR 2 DAYS
  5. VICODIN [Suspect]
     Indication: INTENTIONAL MISUSE
     Dosage: UNDISCLOSED NUMBER EVERY 2-4 HOURS, FOR 2 DAYS

REACTIONS (12)
  - ANURIA [None]
  - ARRHYTHMIA [None]
  - ASPARTATE AMINOTRANSFERASE INCREASED [None]
  - DIALYSIS [None]
  - DISSEMINATED INTRAVASCULAR COAGULATION [None]
  - DYSPNOEA [None]
  - GENERAL PHYSICAL HEALTH DETERIORATION [None]
  - HYPOTENSION [None]
  - RENAL FAILURE [None]
  - RESPIRATORY FAILURE [None]
  - SEPSIS [None]
  - TRANSAMINASES INCREASED [None]
